FAERS Safety Report 19623242 (Version 1)
Quarter: 2021Q3

REPORT INFORMATION
  Report Type: Spontaneous
  Country: US (occurrence: US)
  Receive Date: 20210728
  Receipt Date: 20210728
  Transmission Date: 20211014
  Serious: No
  Sender: FDA-Public Use
  Company Number: US-CELGENEUS-USA-20210704611

PATIENT
  Age: 43 Year
  Sex: Female

DRUGS (2)
  1. ZEPOSIA [Suspect]
     Active Substance: OZANIMOD HYDROCHLORIDE
     Indication: MULTIPLE SCLEROSIS
     Dosage: .92 MILLIGRAM
     Route: 048
     Dates: start: 20150101, end: 20210501
  2. OCREVUS [Concomitant]
     Active Substance: OCRELIZUMAB
     Indication: MULTIPLE SCLEROSIS
     Dosage: 300 MILLIGRAM
     Route: 041
     Dates: start: 20210515, end: 202105

REACTIONS (5)
  - Fall [Unknown]
  - Unevaluable event [Unknown]
  - Crying [Unknown]
  - Decreased activity [Unknown]
  - Depression [Unknown]

NARRATIVE: CASE EVENT DATE: 20210529
